FAERS Safety Report 19056607 (Version 1)
Quarter: 2021Q1

REPORT INFORMATION
  Report Type: Spontaneous
  Country: US (occurrence: US)
  Receive Date: 20210325
  Receipt Date: 20210325
  Transmission Date: 20210420
  Serious: Yes (Hospitalization)
  Sender: FDA-Public Use
  Company Number: None

PATIENT
  Age: 78 Year
  Sex: Male

DRUGS (9)
  1. DOFETILIDE. [Suspect]
     Active Substance: DOFETILIDE
     Indication: PRODUCT USED FOR UNKNOWN INDICATION
     Route: 048
     Dates: start: 20191228
  2. DOXAZOSIN [Concomitant]
     Active Substance: DOXAZOSIN MESYLATE
  3. HYDRALAZINE [Concomitant]
     Active Substance: HYDRALAZINE HYDROCHLORIDE
  4. METOPROLOL ER [Concomitant]
     Active Substance: METOPROLOL SUCCINATE
  5. TELMISARTAN. [Concomitant]
     Active Substance: TELMISARTAN
  6. HYDROXYUREA. [Concomitant]
     Active Substance: HYDROXYUREA
  7. DILTIAZEM ER [Concomitant]
     Active Substance: DILTIAZEM
  8. ALLOPURINOL. [Concomitant]
     Active Substance: ALLOPURINOL
  9. PRAVASTATIN. [Concomitant]
     Active Substance: PRAVASTATIN

REACTIONS (1)
  - Hydrocephalus [None]

NARRATIVE: CASE EVENT DATE: 20210318
